FAERS Safety Report 7215199-1 (Version None)
Quarter: 2011Q1

REPORT INFORMATION
  Report Type: 
  Country: None (occurrence: None)
  Receive Date: 20110107
  Receipt Date: 20101021
  Transmission Date: 20110831
  Serious: No
  Sender: FDA-Public Use
  Company Number: A0888063A

PATIENT
  Sex: Male

DRUGS (2)
  1. UNSPECIFIED MEDICATIONS [Concomitant]
  2. LOVAZA [Suspect]
     Dosage: 4TAB PER DAY
     Route: 048
     Dates: start: 20101004

REACTIONS (2)
  - PHARYNGITIS [None]
  - LARYNGITIS [None]
